FAERS Safety Report 15213046 (Version 1)
Quarter: 2018Q3

REPORT INFORMATION
  Report Type: Spontaneous
  Country: CN (occurrence: CN)
  Receive Date: 20180730
  Receipt Date: 20180730
  Transmission Date: 20181010
  Serious: Yes (Life-Threatening, Other)
  Sender: FDA-Public Use
  Company Number: CN-ACCORD-069992

PATIENT
  Age: 51 Year
  Sex: Female

DRUGS (4)
  1. CISPLATIN. [Suspect]
     Active Substance: CISPLATIN
     Indication: NEUROENDOCRINE CARCINOMA
     Dosage: 75 MG/M2 ON D 1
  2. RALTITREXED [Suspect]
     Active Substance: RALTITREXED
     Indication: NEUROENDOCRINE CARCINOMA
     Dosage: ON D 1
  3. ETOPOSIDE. [Suspect]
     Active Substance: ETOPOSIDE
     Indication: NEUROENDOCRINE CARCINOMA
     Dosage: 100 MG/M2 ON D 1 TO 3
  4. IRINOTECAN [Suspect]
     Active Substance: IRINOTECAN
     Indication: NEUROENDOCRINE CARCINOMA
     Dosage: ON D 1

REACTIONS (1)
  - Drug ineffective [Unknown]
